FAERS Safety Report 9119332 (Version 1)
Quarter: 2013Q1

REPORT INFORMATION
  Report Type: Spontaneous
  Country: US (occurrence: US)
  Receive Date: 20130207
  Receipt Date: 20130207
  Transmission Date: 20140127
  Serious: Yes (Hospitalization, Other)
  Sender: FDA-Public Use
  Company Number: US-PFIZER INC-2013049362

PATIENT
  Age: 66 Year
  Sex: Female

DRUGS (9)
  1. PAROXETINE [Suspect]
     Dosage: UNK
     Route: 065
  2. IFOSFAMIDE [Suspect]
     Indication: CHEMOTHERAPY
     Route: 065
  3. METHYLENE BLUE [Interacting]
     Indication: ENCEPHALOPATHY
     Dosage: 0.7 MG/KG,4 HR
     Route: 042
  4. METHYLENE BLUE [Interacting]
     Indication: CHEMOTHERAPY
  5. CARBOPLATIN [Concomitant]
     Indication: CHEMOTHERAPY
     Dosage: UNK
     Route: 065
  6. ETOPOSIDE [Concomitant]
     Indication: CHEMOTHERAPY
     Dosage: UNK
     Route: 065
  7. DEXAMETHASONE [Concomitant]
     Indication: VOMITING
     Dosage: UNK
     Route: 065
  8. BUPROPION [Concomitant]
     Indication: PRODUCT USED FOR UNKNOWN INDICATION
     Dosage: UNK
     Route: 065
  9. APREPITANT [Concomitant]
     Indication: PRODUCT USED FOR UNKNOWN INDICATION
     Dosage: UNK
     Route: 065

REACTIONS (25)
  - Serotonin syndrome [Unknown]
  - Lethargy [Unknown]
  - Agitation [Unknown]
  - Mydriasis [Unknown]
  - Dyskinesia [Unknown]
  - Hyperreflexia [Unknown]
  - Unresponsive to stimuli [Unknown]
  - Tachypnoea [Unknown]
  - Tachycardia [Unknown]
  - Acidosis [Unknown]
  - Communication disorder [Unknown]
  - Mental status changes [Recovered/Resolved]
  - Hypoxia [Unknown]
  - Pleural effusion [Unknown]
  - Pulmonary oedema [Unknown]
  - Delirium [Unknown]
  - Infection [Unknown]
  - Aspiration [Unknown]
  - Deep vein thrombosis [Unknown]
  - Blood creatinine increased [Recovered/Resolved]
  - Blood urea increased [Recovered/Resolved]
  - Aspartate aminotransferase increased [Recovered/Resolved]
  - Alanine aminotransferase increased [Recovered/Resolved]
  - Drug interaction [Unknown]
  - Encephalopathy [Unknown]
